FAERS Safety Report 6034895-5 (Version None)
Quarter: 2009Q1

REPORT INFORMATION
  Report Type: 
  Country: None (occurrence: None)
  Receive Date: 20090108
  Receipt Date: 20090108
  Transmission Date: 20090719
  Serious: Yes (Life-Threatening, Other)
  Sender: FDA-Public Use
  Company Number: None

PATIENT
  Age: 44 Year
  Sex: Female
  Weight: 70.3075 kg

DRUGS (2)
  1. FEMHRT [Suspect]
     Indication: POSTMENOPAUSE
     Dosage: 2 PILLS DAILY PO
     Route: 048
     Dates: start: 20081016, end: 20081231
  2. FEMHRT [Suspect]
     Indication: POSTMENOPAUSE
     Dosage: 2 PILLS DAILY PO
     Route: 048
     Dates: start: 20090107

REACTIONS (4)
  - BACK PAIN [None]
  - DIZZINESS POSTURAL [None]
  - MENORRHAGIA [None]
  - SLEEP DISORDER [None]
